FAERS Safety Report 6278311-7 (Version None)
Quarter: 2009Q3

REPORT INFORMATION
  Report Type: 
  Country: None (occurrence: None)
  Receive Date: 20090720
  Receipt Date: 20090720
  Transmission Date: 20100115
  Serious: Yes (Other)
  Sender: FDA-Public Use
  Company Number: None

PATIENT
  Age: 30 Year
  Sex: Female
  Weight: 81.6475 kg

DRUGS (1)
  1. NUVIGIL [Suspect]
     Indication: FATIGUE
     Dosage: 150 MG Q AM Q AM PO
     Route: 048
     Dates: start: 20090717, end: 20090718

REACTIONS (5)
  - DECREASED APPETITE [None]
  - FEELING ABNORMAL [None]
  - INSOMNIA [None]
  - NAUSEA [None]
  - POOR QUALITY SLEEP [None]
